FAERS Safety Report 12670854 (Version 1)
Quarter: 2016Q3

REPORT INFORMATION
  Report Type: Spontaneous
  Country: US (occurrence: US)
  Receive Date: 20160822
  Receipt Date: 20160822
  Transmission Date: 20161109
  Serious: No
  Sender: FDA-Public Use
  Company Number: US-JAZZ-2016-US-006308

PATIENT
  Sex: Female

DRUGS (25)
  1. LINZESS [Concomitant]
     Active Substance: LINACLOTIDE
  2. ZYRTEC [Concomitant]
     Active Substance: CETIRIZINE HYDROCHLORIDE
  3. ACIDOPHILUS [Concomitant]
     Active Substance: LACTOBACILLUS ACIDOPHILUS
  4. METHYLIN [Concomitant]
     Active Substance: METHYLPHENIDATE HYDROCHLORIDE
  5. VITAMIN E [Concomitant]
     Active Substance: .ALPHA.-TOCOPHEROL
  6. DIAZEPAM. [Concomitant]
     Active Substance: DIAZEPAM
  7. INDOMETHACIN. [Concomitant]
     Active Substance: INDOMETHACIN
  8. BIOTIN [Concomitant]
     Active Substance: BIOTIN
  9. CLARITIN [Concomitant]
     Active Substance: LORATADINE
  10. TIZANIDINE. [Concomitant]
     Active Substance: TIZANIDINE
  11. XYREM [Suspect]
     Active Substance: SODIUM OXYBATE
     Dosage: DOSE ADJUSTMENTS
     Route: 048
  12. NAPROXEN. [Concomitant]
     Active Substance: NAPROXEN
  13. APRI [Concomitant]
     Active Substance: DESOGESTREL\ETHINYL ESTRADIOL
  14. MAXALT [Concomitant]
     Active Substance: RIZATRIPTAN BENZOATE
  15. NEXIUM [Concomitant]
     Active Substance: ESOMEPRAZOLE MAGNESIUM
  16. XYREM [Suspect]
     Active Substance: SODIUM OXYBATE
     Indication: NARCOLEPSY
     Dosage: 2.25 G, BID
     Route: 048
     Dates: start: 201001, end: 201002
  17. XYREM [Suspect]
     Active Substance: SODIUM OXYBATE
     Dosage: 4.5 G, BID
     Route: 048
     Dates: start: 201208
  18. SPIRONOLACTONE. [Concomitant]
     Active Substance: SPIRONOLACTONE
  19. ONE DAILY FOR WOMEN [Concomitant]
  20. FAMCICLOVIR. [Concomitant]
     Active Substance: FAMCICLOVIR
  21. HYDROXYZINE PAMOATE. [Concomitant]
     Active Substance: HYDROXYZINE PAMOATE
  22. DAYTRANA [Concomitant]
     Active Substance: METHYLPHENIDATE
  23. CEFDINIR. [Concomitant]
     Active Substance: CEFDINIR
  24. VITAMIN D [Concomitant]
     Active Substance: CHOLECALCIFEROL
  25. IBUPROFEN. [Concomitant]
     Active Substance: IBUPROFEN

REACTIONS (2)
  - Salt craving [Unknown]
  - Sinusitis [Unknown]
